FAERS Safety Report 6962953-7 (Version None)
Quarter: 2010Q3

REPORT INFORMATION
  Report Type: 
  Country: None (occurrence: None)
  Receive Date: 20100902
  Receipt Date: 20100825
  Transmission Date: 20110219
  Serious: Yes (Hospitalization)
  Sender: FDA-Public Use
  Company Number: US-ROCHE-712700

PATIENT
  Sex: Male
  Weight: 62.1 kg

DRUGS (13)
  1. BEVACIZUMAB [Suspect]
     Indication: NON-SMALL CELL LUNG CANCER
     Route: 042
     Dates: start: 20100402, end: 20100604
  2. PEMETREXED [Suspect]
     Indication: NON-SMALL CELL LUNG CANCER
     Route: 042
     Dates: start: 20100402, end: 20100604
  3. CARBOPLATIN [Suspect]
     Indication: NON-SMALL CELL LUNG CANCER
     Dosage: DOSE: 6 D/F
     Route: 065
     Dates: start: 20100402, end: 20100604
  4. LIPITOR [Concomitant]
     Dosage: REPORTED AS: ATORVASTATIN CALCIUM
     Dates: end: 20100610
  5. NEXIUM [Concomitant]
     Indication: GASTROOESOPHAGEAL REFLUX DISEASE
     Dosage: REPORTED AS: ESOMEPRAZOLE MAGNESIUM
     Dates: end: 20100610
  6. TRAMADOL HCL [Concomitant]
     Indication: PAIN
     Dates: start: 20100402, end: 20100610
  7. VITAMIN B-12 [Concomitant]
     Dates: start: 20100325, end: 20100613
  8. FOLIC ACID [Concomitant]
     Dates: start: 20100325, end: 20100610
  9. ALBUTEROL [Concomitant]
     Dates: end: 20100610
  10. ZOFRAN [Concomitant]
     Indication: NAUSEA
     Dosage: REPORTED AS:ONDANSETRON HYDROCHLORIDE
     Dates: start: 20100318, end: 20100610
  11. XANAX [Concomitant]
     Indication: ANXIETY
     Dates: end: 20100613
  12. AVANDIA [Concomitant]
     Dosage: REPORTED AS: ROSIGLITAZONE MALEATE
     Dates: end: 20100610
  13. CITALOPRAM HYDROBROMIDE [Concomitant]
     Indication: DEPRESSION
     Dates: end: 20100610

REACTIONS (2)
  - ABDOMINAL PAIN [None]
  - MENTAL STATUS CHANGES [None]
